FAERS Safety Report 10367730 (Version 3)
Quarter: 2014Q4

REPORT INFORMATION
  Report Type: Spontaneous
  Country: JP (occurrence: None)
  Receive Date: 20140805
  Receipt Date: 20141010
  Transmission Date: 20150528
  Serious: Yes (Death, Hospitalization)
  Sender: FDA-Public Use
  Company Number: ABR_01753_2014

PATIENT
  Age: 65 Year
  Sex: Male

DRUGS (3)
  1. GLIADEL [Suspect]
     Active Substance: CARMUSTINE
     Indication: MALIGNANT GLIOMA
     Dosage: (7 DF 1X, [53.9 MG] INTRACEREBRAL )?
     Dates: start: 20140613
  2. PLAVIX [Suspect]
     Active Substance: CLOPIDOGREL BISULFATE
     Indication: PRODUCT USED FOR UNKNOWN INDICATION
     Dosage: (75 MG, [PER DAY] ORAL)?
     Route: 048
     Dates: start: 20140709, end: 20140808
  3. RINDERON V [Concomitant]
     Active Substance: BETAMETHASONE VALERATE

REACTIONS (2)
  - Cerebral infarction [None]
  - Cerebral haemorrhage [None]

NARRATIVE: CASE EVENT DATE: 20140707
